FAERS Safety Report 19122630 (Version 2)
Quarter: 2021Q3

REPORT INFORMATION
  Report Type: Spontaneous
  Country: US (occurrence: US)
  Receive Date: 20210412
  Receipt Date: 20210819
  Transmission Date: 20211014
  Serious: Yes (Hospitalization)
  Sender: FDA-Public Use
  Company Number: US-BAUSCH-BL-2021-012259

PATIENT
  Sex: Male

DRUGS (1)
  1. JUBLIA [Suspect]
     Active Substance: EFINACONAZOLE
     Indication: ONYCHOMYCOSIS
     Dosage: FOR ABOUT A YEAR NOW
     Route: 061
     Dates: start: 2020

REACTIONS (6)
  - Nephrolithiasis [Unknown]
  - Product administered at inappropriate site [Unknown]
  - Product administration error [Unknown]
  - Pain of skin [Unknown]
  - Nail disorder [Unknown]
  - Product packaging quantity issue [Unknown]

NARRATIVE: CASE EVENT DATE: 2021
